FAERS Safety Report 8813334 (Version 1)
Quarter: 2012Q4

REPORT INFORMATION
  Report Type: 
  Country: US (occurrence: US)
  Receive Date: 20120927
  Receipt Date: 20120927
  Transmission Date: 20130627
  Serious: No
  Sender: FDA-Public Use
  Company Number: US-AMGEN-USASP2012046268

PATIENT
  Age: 54 Year
  Sex: Female

DRUGS (4)
  1. PROLIA [Suspect]
     Indication: OSTEOPOROSIS POSTMENOPAUSAL
     Dosage: UNK UNK, q6mo
     Dates: start: 201105
  2. ENTOCORT [Concomitant]
     Indication: AUTOIMMUNE HEPATITIS
  3. AZATHIOPRINE [Concomitant]
  4. OMEPRAZOLE [Concomitant]

REACTIONS (1)
  - Flatulence [Recovered/Resolved]
